FAERS Safety Report 9541502 (Version 1)
Quarter: 2013Q3

REPORT INFORMATION
  Report Type: Spontaneous
  Country: US (occurrence: None)
  Receive Date: 20130919
  Receipt Date: 20130919
  Transmission Date: 20140515
  Serious: Yes (Life-Threatening, Hospitalization, Disabling)
  Sender: FDA-Public Use
  Company Number: None

PATIENT
  Age: 12 Year
  Sex: Female
  Weight: 35.4 kg

DRUGS (18)
  1. METHOTREXATE [Suspect]
     Indication: ACUTE LYMPHOCYTIC LEUKAEMIA
     Dosage: 15 MG
     Dates: start: 20130710, end: 20130710
  2. EPINEPHRINE, [Concomitant]
  3. NOREPINEPHRINE, [Concomitant]
  4. DOBUTAMINE, [Concomitant]
  5. MILRINONE, [Concomitant]
  6. VASOPRESSIN INFUSIONS VECURONIUM (CHANGED TO CISATRACURIUM), [Concomitant]
  7. DEXMEDETOMIDINE, [Concomitant]
  8. MIDAZOLAM INFUSIONS [Concomitant]
  9. HYDROCORTISONE IVP [Concomitant]
  10. FUROSEMIDE INFUSION [Concomitant]
  11. IVIG (FLEBOGAMMA [Concomitant]
  12. NEUPOGEN [Concomitant]
  13. VANCOMYCIN, [Concomitant]
  14. MEROPENEM, [Concomitant]
  15. METRONIDAZOLE, [Concomitant]
  16. VORICONAZOLE, [Concomitant]
  17. TOBRAMYCIN, [Concomitant]
  18. BACTRIM (PCP PROPHYLAXIS) [Concomitant]

REACTIONS (7)
  - Septic shock [None]
  - Colitis [None]
  - Hypotension [None]
  - Mental status changes [None]
  - Nuclear magnetic resonance imaging brain abnormal [None]
  - Asthenia [None]
  - Progressive multifocal leukoencephalopathy [None]
